FAERS Safety Report 10077436 (Version 1)
Quarter: 2014Q2

REPORT INFORMATION
  Report Type: Spontaneous
  Country: US (occurrence: US)
  Receive Date: 20140414
  Receipt Date: 20140414
  Transmission Date: 20141212
  Serious: Yes (Other)
  Sender: FDA-Public Use
  Company Number: US-TEVA-474733USA

PATIENT
  Age: 55 Year
  Sex: Female
  Weight: 81.72 kg

DRUGS (4)
  1. FENTORA [Suspect]
     Indication: OSTEONECROSIS
     Dates: start: 201401, end: 20140325
  2. FENTORA [Suspect]
     Indication: SEPTIC NECROSIS
  3. FENTORA [Suspect]
     Indication: BREAKTHROUGH PAIN
  4. METHADONE [Concomitant]
     Indication: PAIN
     Dosage: 160 MILLIGRAM DAILY;
     Route: 048
     Dates: start: 1997

REACTIONS (3)
  - Rib fracture [Recovered/Resolved]
  - Arthralgia [Not Recovered/Not Resolved]
  - Off label use [Unknown]
